FAERS Safety Report 24179377 (Version 3)
Quarter: 2024Q3

REPORT INFORMATION
  Report Type: Report from Study
  Country: US (occurrence: US)
  Receive Date: 20240806
  Receipt Date: 20240830
  Transmission Date: 20241016
  Serious: Yes (Hospitalization)
  Sender: EISAI
  Company Number: US-Eisai-EC-2024-171420

PATIENT
  Age: 68 Year
  Sex: Female
  Weight: 61.7 kg

DRUGS (21)
  1. LENVATINIB [Suspect]
     Active Substance: LENVATINIB
     Indication: Metastatic malignant melanoma
     Route: 048
     Dates: start: 20240604, end: 20240715
  2. PEMBROLIZUMAB [Suspect]
     Active Substance: PEMBROLIZUMAB
     Indication: Metastatic malignant melanoma
     Route: 042
     Dates: start: 20240604, end: 20240716
  3. CALCIUM CARBONATE\CHOLECALCIFEROL [Concomitant]
     Active Substance: CALCIUM CARBONATE\CHOLECALCIFEROL
     Dates: start: 2022
  4. VITAMINS [Concomitant]
     Active Substance: VITAMINS
     Dates: start: 2022
  5. PREDNISONE [Concomitant]
     Active Substance: PREDNISONE
     Dates: start: 20240807, end: 20240807
  6. DEXAMETHASONE [Concomitant]
     Active Substance: DEXAMETHASONE
     Dates: start: 20240808, end: 20240815
  7. KEPPRA [Concomitant]
     Active Substance: LEVETIRACETAM
     Dates: start: 20240808, end: 20240819
  8. TAMSULOSIN [Concomitant]
     Active Substance: TAMSULOSIN
     Dates: start: 20240815, end: 20240815
  9. SODIUM CHLORIDE [Concomitant]
     Active Substance: SODIUM CHLORIDE
     Dates: start: 20240814, end: 20240814
  10. ZOFRAN [Concomitant]
     Active Substance: ONDANSETRON HYDROCHLORIDE
     Dates: start: 20240815, end: 20240815
  11. COMPAZINE [Concomitant]
     Active Substance: PROCHLORPERAZINE MALEATE
     Dates: start: 20240815, end: 20240815
  12. BISACODYL [Concomitant]
     Active Substance: BISACODYL
     Dates: start: 20240812
  13. LACTULOSE [Concomitant]
     Active Substance: LACTULOSE
     Dates: start: 20240811
  14. MIRALAX [Concomitant]
     Active Substance: POLYETHYLENE GLYCOL 3350
     Dates: start: 20240811
  15. REGLAN [Concomitant]
     Active Substance: METOCLOPRAMIDE HYDROCHLORIDE
     Dates: start: 20240815
  16. SENNA+ [Concomitant]
     Dates: start: 20240810
  17. AMLODIPINE [Concomitant]
     Active Substance: AMLODIPINE BESYLATE
     Dates: start: 20240530
  18. VALSARTAN [Concomitant]
     Active Substance: VALSARTAN
     Dates: start: 20240530
  19. NAPROXEN [Concomitant]
     Active Substance: NAPROXEN
     Dates: start: 20240514
  20. DICLOFENAC [Concomitant]
     Active Substance: DICLOFENAC
     Dates: start: 20240406
  21. LEVOTHYROXINE [Concomitant]
     Active Substance: LEVOTHYROXINE\LEVOTHYROXINE SODIUM
     Dates: start: 2020

REACTIONS (1)
  - Haemorrhage intracranial [Recovered/Resolved]

NARRATIVE: CASE EVENT DATE: 20240726
